FAERS Safety Report 5442818-2 (Version None)
Quarter: 2007Q3

REPORT INFORMATION
  Report Type: 
  Country: None (occurrence: None)
  Receive Date: 20070904
  Receipt Date: 20070828
  Transmission Date: 20080115
  Serious: Yes (Other)
  Sender: FDA-Public Use
  Company Number: GB-MERCK-0708GBR00118

PATIENT
  Age: 82 Year
  Sex: Female
  Weight: 60 kg

DRUGS (9)
  1. ZETIA [Suspect]
     Route: 048
     Dates: start: 20070802, end: 20070814
  2. ASPIRIN [Concomitant]
     Route: 048
     Dates: start: 19970423
  3. ATENOLOL [Concomitant]
     Indication: BLOOD PRESSURE
     Route: 048
     Dates: start: 19980914
  4. BENDROFLUMETHIAZIDE [Concomitant]
     Indication: BLOOD PRESSURE
     Route: 048
     Dates: start: 20051027
  5. DIDRONEL [Concomitant]
     Indication: OSTEOPOROSIS
     Route: 048
     Dates: start: 19990525
  6. LANSOPRAZOLE [Concomitant]
     Route: 048
     Dates: start: 20041004
  7. MINOXIDIL [Concomitant]
     Route: 061
     Dates: start: 20070802
  8. POLYETHYLENE GLYCOL 3350 AND POTASSIUM CHLORIDE AND SODIUM BICARBONATE [Concomitant]
     Route: 048
     Dates: start: 20030411
  9. ACETAMINOPHEN [Concomitant]
     Indication: PAIN
     Route: 048
     Dates: start: 20040823

REACTIONS (1)
  - TOOTH DISCOLOURATION [None]
